FAERS Safety Report 19259075 (Version 5)
Quarter: 2021Q2

REPORT INFORMATION
  Report Type: Report from Study
  Country: US (occurrence: US)
  Receive Date: 20210514
  Receipt Date: 20210629
  Transmission Date: 20210717
  Serious: Yes (Other)
  Sender: FDA-Public Use
  Company Number: NVSC2021US102291

PATIENT
  Sex: Male

DRUGS (2)
  1. LASIX [Suspect]
     Active Substance: FUROSEMIDE
     Indication: PRODUCT USED FOR UNKNOWN INDICATION
     Dosage: UNK
     Route: 065
  2. ENTRESTO [Suspect]
     Active Substance: SACUBITRIL\VALSARTAN
     Indication: PRODUCT USED FOR UNKNOWN INDICATION
     Dosage: 50 MG, BID (24/26 MG)
     Route: 048

REACTIONS (13)
  - Memory impairment [Unknown]
  - Joint swelling [Unknown]
  - Complication associated with device [Unknown]
  - Weight increased [Unknown]
  - Product dose omission issue [Unknown]
  - Abdominal discomfort [Unknown]
  - Weight decreased [Unknown]
  - Flatulence [Unknown]
  - Cardiac failure [Unknown]
  - Balance disorder [Unknown]
  - Muscle strain [Unknown]
  - Abdominal pain upper [Unknown]
  - Dehydration [Unknown]
